FAERS Safety Report 9871293 (Version 1)
Quarter: 2014Q1

REPORT INFORMATION
  Report Type: Spontaneous
  Country: DE (occurrence: DE)
  Receive Date: 20140205
  Receipt Date: 20140205
  Transmission Date: 20141002
  Serious: Yes (Other)
  Sender: FDA-Public Use
  Company Number: DE-INCYTE CORPORATION-2014IN000232

PATIENT
  Sex: Male

DRUGS (3)
  1. JAKAVI [Suspect]
     Dosage: 20 MG, BID
     Route: 065
  2. JAKAVI [Suspect]
     Dosage: UNK, UNK, UNK
     Route: 065
  3. LITALIR [Concomitant]

REACTIONS (3)
  - Splenomegaly [Unknown]
  - White blood cell count decreased [Not Recovered/Not Resolved]
  - Platelet count decreased [Unknown]
